FAERS Safety Report 7322878-4 (Version None)
Quarter: 2011Q1

REPORT INFORMATION
  Report Type: 
  Country: None (occurrence: None)
  Receive Date: 20110301
  Receipt Date: 20110218
  Transmission Date: 20110831
  Serious: Yes (Other)
  Sender: FDA-Public Use
  Company Number: US-BAXTER-2010BH028213

PATIENT
  Age: 16 Month
  Sex: Male
  Weight: 28 kg

DRUGS (5)
  1. ADVATE [Suspect]
     Route: 042
     Dates: start: 20030701, end: 20101112
  2. ADVATE [Suspect]
     Indication: FACTOR VIII DEFICIENCY
     Route: 065
     Dates: start: 20101101, end: 20100101
  3. ADVATE [Suspect]
     Route: 042
     Dates: start: 20030701, end: 20101112
  4. ADVATE [Suspect]
     Route: 065
  5. FACTOR VIII, RECOMBINANT [Concomitant]
     Dates: start: 20010101

REACTIONS (3)
  - DYSPNOEA [None]
  - CYANOSIS [None]
  - CHEST PAIN [None]
